FAERS Safety Report 4897493-2 (Version None)
Quarter: 2006Q1

REPORT INFORMATION
  Report Type: 
  Country: None (occurrence: None)
  Receive Date: 20060201
  Receipt Date: 20051205
  Transmission Date: 20060701
  Serious: Yes (Other)
  Sender: FDA-Public Use
  Company Number: FR-BRISTOL-MYERS SQUIBB COMPANY-13212675

PATIENT
  Age: 91 Year
  Sex: Female

DRUGS (1)
  1. VASTEN [Suspect]
     Route: 048

REACTIONS (1)
  - OSTEOARTHRITIS [None]
